FAERS Safety Report 7761997-5 (Version None)
Quarter: 2011Q3

REPORT INFORMATION
  Report Type: 
  Country: None (occurrence: None)
  Receive Date: 20110920
  Receipt Date: 20110915
  Transmission Date: 20111222
  Serious: Yes (Other)
  Sender: FDA-Public Use
  Company Number: FR-BAYER-2011-087254

PATIENT
  Age: 80 Year
  Sex: Male

DRUGS (4)
  1. NEXAVAR [Suspect]
     Indication: HEPATIC NEOPLASM MALIGNANT
     Dosage: 200 MG, QD
     Dates: start: 20110630, end: 20110901
  2. ANTIHYPERTENSIVES [Concomitant]
  3. PLAVIX [Concomitant]
  4. CRESTOR [Concomitant]

REACTIONS (1)
  - ERYTHEMA NODOSUM [None]
